FAERS Safety Report 8832147 (Version 3)
Quarter: 2013Q1

REPORT INFORMATION
  Report Type: Spontaneous
  Country: US (occurrence: US)
  Receive Date: 20121009
  Receipt Date: 20130108
  Transmission Date: 20140127
  Serious: Yes (Other)
  Sender: FDA-Public Use
  Company Number: US-PERRIGO-12US008539

PATIENT
  Age: 37 Year
  Sex: Female
  Weight: 72.56 kg

DRUGS (3)
  1. MICONAZOLE NITRATE [Suspect]
     Indication: VULVOVAGINAL MYCOTIC INFECTION
     Dosage: 200 MG, SINGLE
     Route: 067
     Dates: start: 20120818, end: 20120818
  2. MICONAZOLE NITRATE [Suspect]
     Indication: VULVOVAGINAL MYCOTIC INFECTION
     Dosage: ONE APPLICATION, BID
     Route: 061
     Dates: start: 20120818, end: 20120818
  3. PRENATAL VITAMINS [Concomitant]
     Indication: PRENATAL CARE
     Dosage: UNK, UNK
     Route: 048
     Dates: start: 2012

REACTIONS (4)
  - Exposure during pregnancy [Unknown]
  - Abortion spontaneous [None]
  - Vaginal haemorrhage [Unknown]
  - Abdominal pain lower [Unknown]
